FAERS Safety Report 21944589 (Version 6)
Quarter: 2025Q3

REPORT INFORMATION
  Report Type: Spontaneous
  Country: EU (occurrence: EU)
  Receive Date: 20230202
  Receipt Date: 20250813
  Transmission Date: 20251021
  Serious: Yes (Other)
  Sender: MYLAN
  Company Number: EU-TEVA-2022-CZ-2831057

PATIENT
  Age: 48 Year
  Sex: Male

DRUGS (32)
  1. OXALIPLATIN [Suspect]
     Active Substance: OXALIPLATIN
     Indication: Colorectal cancer metastatic
     Route: 065
  2. OXALIPLATIN [Suspect]
     Active Substance: OXALIPLATIN
     Indication: Rectosigmoid cancer
  3. OXALIPLATIN [Suspect]
     Active Substance: OXALIPLATIN
     Indication: Chemotherapy
  4. OXALIPLATIN [Suspect]
     Active Substance: OXALIPLATIN
     Indication: Neoadjuvant therapy
     Route: 065
  5. OXALIPLATIN [Suspect]
     Active Substance: OXALIPLATIN
     Route: 065
  6. OXALIPLATIN [Suspect]
     Active Substance: OXALIPLATIN
  7. OXALIPLATIN [Suspect]
     Active Substance: OXALIPLATIN
  8. OXALIPLATIN [Suspect]
     Active Substance: OXALIPLATIN
     Route: 065
  9. CAPECITABINE [Suspect]
     Active Substance: CAPECITABINE
     Indication: Colorectal cancer metastatic
     Route: 065
     Dates: start: 2020, end: 2020
  10. CAPECITABINE [Suspect]
     Active Substance: CAPECITABINE
     Indication: Rectosigmoid cancer
     Dates: start: 2020, end: 2020
  11. CAPECITABINE [Suspect]
     Active Substance: CAPECITABINE
     Indication: Chemotherapy
     Dates: start: 2020, end: 2020
  12. CAPECITABINE [Suspect]
     Active Substance: CAPECITABINE
     Indication: Neoadjuvant therapy
     Route: 065
     Dates: start: 2020, end: 2020
  13. CAPECITABINE [Suspect]
     Active Substance: CAPECITABINE
     Route: 065
  14. CAPECITABINE [Suspect]
     Active Substance: CAPECITABINE
  15. CAPECITABINE [Suspect]
     Active Substance: CAPECITABINE
  16. CAPECITABINE [Suspect]
     Active Substance: CAPECITABINE
     Route: 065
  17. IRINOTECAN [Suspect]
     Active Substance: IRINOTECAN
     Indication: Colorectal cancer metastatic
  18. IRINOTECAN [Suspect]
     Active Substance: IRINOTECAN
     Route: 065
  19. IRINOTECAN [Suspect]
     Active Substance: IRINOTECAN
     Route: 065
  20. IRINOTECAN [Suspect]
     Active Substance: IRINOTECAN
  21. CETUXIMAB [Suspect]
     Active Substance: CETUXIMAB
     Indication: Colorectal cancer metastatic
  22. CETUXIMAB [Suspect]
     Active Substance: CETUXIMAB
     Route: 065
  23. CETUXIMAB [Suspect]
     Active Substance: CETUXIMAB
     Route: 065
  24. CETUXIMAB [Suspect]
     Active Substance: CETUXIMAB
  25. LEUCOVORIN CALCIUM [Suspect]
     Active Substance: LEUCOVORIN CALCIUM
     Indication: Colorectal cancer metastatic
  26. LEUCOVORIN CALCIUM [Suspect]
     Active Substance: LEUCOVORIN CALCIUM
     Route: 065
  27. LEUCOVORIN CALCIUM [Suspect]
     Active Substance: LEUCOVORIN CALCIUM
     Route: 065
  28. LEUCOVORIN CALCIUM [Suspect]
     Active Substance: LEUCOVORIN CALCIUM
  29. FLUOROURACIL [Suspect]
     Active Substance: FLUOROURACIL
     Indication: Colorectal cancer metastatic
  30. FLUOROURACIL [Suspect]
     Active Substance: FLUOROURACIL
     Route: 065
  31. FLUOROURACIL [Suspect]
     Active Substance: FLUOROURACIL
     Route: 065
  32. FLUOROURACIL [Suspect]
     Active Substance: FLUOROURACIL

REACTIONS (5)
  - Disease recurrence [Unknown]
  - Disease progression [Recovered/Resolved]
  - Colon cancer [Recovered/Resolved]
  - Neutropenia [Recovered/Resolved]
  - Thrombocytopenia [Recovered/Resolved]

NARRATIVE: CASE EVENT DATE: 20200101
